FAERS Safety Report 7806157-4 (Version None)
Quarter: 2011Q4

REPORT INFORMATION
  Report Type: 
  Country: None (occurrence: None)
  Receive Date: 20111007
  Receipt Date: 20111007
  Transmission Date: 20120403
  Serious: No
  Sender: FDA-Public Use
  Company Number: None

PATIENT
  Age: 67 Year
  Sex: Female
  Weight: 78.4723 kg

DRUGS (1)
  1. TAMOXIFEN 20 MG TEVA USA [Suspect]
     Indication: BREAST DISORDER FEMALE
     Dosage: 1-20 MG EVERY DAY 1
     Dates: start: 20110817, end: 20110903

REACTIONS (3)
  - HOT FLUSH [None]
  - VISION BLURRED [None]
  - ABDOMINAL DISCOMFORT [None]
